FAERS Safety Report 9100734 (Version 1)
Quarter: 2013Q1

REPORT INFORMATION
  Report Type: Spontaneous
  Country: GB (occurrence: GB)
  Receive Date: 20130215
  Receipt Date: 20130215
  Transmission Date: 20140127
  Serious: Yes (Other)
  Sender: FDA-Public Use
  Company Number: GB-JNJFOC-20130202598

PATIENT
  Age: 82 Year
  Sex: Male
  Weight: 73 kg

DRUGS (6)
  1. KETOCONAZOLE [Suspect]
     Indication: PRODUCT USED FOR UNKNOWN INDICATION
     Route: 061
     Dates: start: 20130109, end: 20130111
  2. FUROSEMIDE [Concomitant]
     Route: 048
     Dates: start: 20101215
  3. LATANOPROST [Concomitant]
     Route: 061
     Dates: start: 20101015
  4. LERCANIDIPINE [Concomitant]
     Route: 048
     Dates: start: 20101215
  5. PERINDOPRIL [Concomitant]
     Route: 048
     Dates: start: 20120215
  6. WARFARIN [Concomitant]
     Route: 048
     Dates: start: 20110817

REACTIONS (4)
  - Local reaction [Recovering/Resolving]
  - Application site vesicles [Recovering/Resolving]
  - Erythema [Recovering/Resolving]
  - Application site swelling [Recovering/Resolving]
